FAERS Safety Report 10060304 (Version 10)
Quarter: 2017Q2

REPORT INFORMATION
  Report Type: Report from Study
  Country: US (occurrence: US)
  Receive Date: 20140404
  Receipt Date: 20170413
  Transmission Date: 20170829
  Serious: Yes (Other)
  Sender: FDA-Public Use
  Company Number: US-SA-2013SA136157

PATIENT
  Age: 41 Year
  Sex: Female
  Weight: 87.99 kg

DRUGS (10)
  1. LEXAPRO [Concomitant]
     Active Substance: ESCITALOPRAM OXALATE
     Indication: DEPRESSION
  2. VITAMIN D3 [Concomitant]
     Active Substance: CHOLECALCIFEROL
     Indication: MULTIPLE SCLEROSIS
  3. L-THYROXINE [Concomitant]
     Active Substance: LEVOTHYROXINE
     Indication: THYROID DISORDER
  4. AUBAGIO [Suspect]
     Active Substance: TERIFLUNOMIDE
     Indication: MULTIPLE SCLEROSIS
     Route: 048
     Dates: start: 20131208
  5. AUBAGIO [Suspect]
     Active Substance: TERIFLUNOMIDE
     Indication: MULTIPLE SCLEROSIS
     Route: 048
     Dates: start: 201703
  6. AUBAGIO [Suspect]
     Active Substance: TERIFLUNOMIDE
     Indication: MULTIPLE SCLEROSIS
     Route: 048
     Dates: start: 20131211, end: 201703
  7. BIOTIN [Concomitant]
     Active Substance: BIOTIN
     Indication: ALOPECIA
     Dates: start: 20131221
  8. AUBAGIO [Suspect]
     Active Substance: TERIFLUNOMIDE
     Indication: MULTIPLE SCLEROSIS
     Route: 048
     Dates: start: 20131211, end: 201703
  9. ASPIRIN. [Concomitant]
     Active Substance: ASPIRIN
     Indication: CEREBROVASCULAR ACCIDENT
  10. FISH OIL [Concomitant]
     Active Substance: FISH OIL

REACTIONS (14)
  - Fall [Unknown]
  - Cerebral disorder [Unknown]
  - Madarosis [Not Recovered/Not Resolved]
  - Product use issue [Unknown]
  - Laceration [Unknown]
  - Platelet count decreased [Not Recovered/Not Resolved]
  - Diarrhoea [Not Recovered/Not Resolved]
  - Hepatic enzyme increased [Unknown]
  - Injury [Unknown]
  - Blood pressure diastolic increased [Unknown]
  - Tendon rupture [Unknown]
  - Alopecia [Not Recovered/Not Resolved]
  - Drug dose omission [Unknown]
  - Hypertension [Recovered/Resolved]

NARRATIVE: CASE EVENT DATE: 20131220
